FAERS Safety Report 11653061 (Version 2)
Quarter: 2015Q4

REPORT INFORMATION
  Report Type: Report from Study
  Country: US (occurrence: US)
  Receive Date: 20151022
  Receipt Date: 20151124
  Transmission Date: 20160304
  Serious: Yes (Death, Hospitalization, Disabling)
  Sender: FDA-Public Use
  Company Number: US-MALLINCKRODT-T201504792

PATIENT
  Sex: Male

DRUGS (1)
  1. REPOSITORY CORTICOTROPIN INJECTION [Suspect]
     Active Substance: CORTICOTROPIN
     Indication: SARCOIDOSIS
     Dosage: 80 UNITS TWICE WEEKLY
     Route: 058

REACTIONS (4)
  - Dyspnoea [Not Recovered/Not Resolved]
  - Respiratory failure [Fatal]
  - Pulmonary fibrosis [Fatal]
  - Disability [Not Recovered/Not Resolved]
